FAERS Safety Report 7414501 (Version 3)
Quarter: 2015Q4

REPORT INFORMATION
  Report Type: Report from Study
  Country: US (occurrence: US)
  Receive Date: 20100609
  Receipt Date: 20151127
  Transmission Date: 20160305
  Serious: Yes (Hospitalization)
  Sender: FDA-Public Use
  Company Number: US-ROCHE-707804

PATIENT
  Age: 48 Year

DRUGS (15)
  1. PACLITAXEL. [Suspect]
     Active Substance: PACLITAXEL
     Indication: MALIGNANT PERITONEAL NEOPLASM
  2. BEVACIZUMAB [Suspect]
     Active Substance: BEVACIZUMAB
     Indication: MALIGNANT PERITONEAL NEOPLASM
  3. CARBOPLATIN. [Suspect]
     Active Substance: CARBOPLATIN
     Indication: FALLOPIAN TUBE CANCER
  4. BEVACIZUMAB [Suspect]
     Active Substance: BEVACIZUMAB
     Indication: FALLOPIAN TUBE CANCER
  5. CISPLATIN. [Suspect]
     Active Substance: CISPLATIN
     Indication: FALLOPIAN TUBE CANCER
  6. CISPLATIN. [Suspect]
     Active Substance: CISPLATIN
     Indication: MALIGNANT PERITONEAL NEOPLASM
  7. BEVACIZUMAB [Suspect]
     Active Substance: BEVACIZUMAB
     Indication: OVARIAN EPITHELIAL CANCER
     Dosage: OVER 30-90 MIN ON DAY 1 OF CYCLES 2-6 AND CYCLES 7-22 ON DAY 1?LATEST DOSE PRIOR TO AE: 15/JUN/2010
     Route: 042
  8. CISPLATIN. [Suspect]
     Active Substance: CISPLATIN
     Indication: MALIGNANT PERITONEAL NEOPLASM
     Dosage: 75 MG/M2 ON DAY 2?LATEST DOSE PRIOR TO AE: 15/JUN/2010
     Route: 033
     Dates: start: 20100302
  9. PACLITAXEL. [Suspect]
     Active Substance: PACLITAXEL
     Indication: OVARIAN CANCER
     Dosage: OVER 1 HR ON DAY 1, 8 AND 15 FROM CYCLE 1 TO 6?LATEST DOSE PRIOR TO AE: 15/JUN/2010
     Route: 042
     Dates: start: 20100302
  10. PACLITAXEL. [Suspect]
     Active Substance: PACLITAXEL
     Indication: FALLOPIAN TUBE CANCER
  11. HYDROMORPHONE [Suspect]
     Active Substance: HYDROMORPHONE
     Indication: PRODUCT USED FOR UNKNOWN INDICATION
     Route: 065
  12. CARBOPLATIN. [Suspect]
     Active Substance: CARBOPLATIN
     Indication: OVARIAN CANCER
     Dosage: 6 AUC ON DAY 1?LATEST DOSE PRIOR TO AE: 15/JUN/2010
     Route: 033
     Dates: start: 20100302
  13. CIPROFLOXACIN. [Concomitant]
     Active Substance: CIPROFLOXACIN
     Route: 065
  14. CARBOPLATIN. [Suspect]
     Active Substance: CARBOPLATIN
     Indication: MALIGNANT PERITONEAL NEOPLASM
  15. ACETAMINOPHEN/HYDROCODONE [Suspect]
     Active Substance: ACETAMINOPHEN\HYDROCODONE
     Indication: PRODUCT USED FOR UNKNOWN INDICATION
     Dosage: DRUG NAME REPORTED AS VICODIN
     Route: 065

REACTIONS (17)
  - Constipation [Unknown]
  - Abdominal pain [Recovered/Resolved]
  - White blood cell count decreased [Unknown]
  - Haemoglobin decreased [Unknown]
  - Blood calcium decreased [Unknown]
  - Vomiting [Unknown]
  - Blood sodium decreased [Unknown]
  - Fatigue [Unknown]
  - Abdominal pain [Unknown]
  - Lymphocyte count decreased [Unknown]
  - Blood glucose decreased [Unknown]
  - Duodenal obstruction [Recovered/Resolved]
  - Duodenal obstruction [Unknown]
  - Blood magnesium decreased [Unknown]
  - Hyperglycaemia [Unknown]
  - Nausea [Unknown]
  - Neutrophil count decreased [Unknown]

NARRATIVE: CASE EVENT DATE: 20100513
